FAERS Safety Report 13467368 (Version 1)
Quarter: 2017Q2

REPORT INFORMATION
  Report Type: Spontaneous
  Country: US (occurrence: US)
  Receive Date: 20170421
  Receipt Date: 20170421
  Transmission Date: 20170830
  Serious: Yes (Disabling)
  Sender: FDA-Public Use
  Company Number: None

PATIENT
  Age: 22 Year
  Sex: Female
  Weight: 67.5 kg

DRUGS (2)
  1. NUVARING [Suspect]
     Active Substance: ETHINYL ESTRADIOL\ETONOGESTREL
     Indication: CONTRACEPTION
     Dosage: ?          QUANTITY:3 3;OTHER FREQUENCY:EVERY THREE WEEKS;?
     Route: 067
     Dates: start: 20150901, end: 20151208
  2. PROZAC [Concomitant]
     Active Substance: FLUOXETINE HYDROCHLORIDE

REACTIONS (3)
  - Pregnancy with contraceptive device [None]
  - Exposure during pregnancy [None]
  - Cervix carcinoma stage I [None]

NARRATIVE: CASE EVENT DATE: 20160122
